FAERS Safety Report 4725090-8 (Version None)
Quarter: 2005Q3

REPORT INFORMATION
  Report Type: 
  Country: None (occurrence: None)
  Receive Date: 20050725
  Receipt Date: 20050711
  Transmission Date: 20060218
  Serious: Yes (Other)
  Sender: FDA-Public Use
  Company Number: 05-07-1267

PATIENT
  Age: 43 Year
  Sex: Female

DRUGS (3)
  1. SALAMOL INHALATION SOLUTION [Suspect]
     Indication: ASTHMA
     Dosage: 5 MG PRN INHALATION
     Route: 055
     Dates: start: 20050626
  2. AMOXICILLIN [Concomitant]
  3. SERETIDE [Concomitant]

REACTIONS (1)
  - LACTIC ACIDOSIS [None]
